FAERS Safety Report 9690936 (Version 2)
Quarter: 2013Q4

REPORT INFORMATION
  Report Type: Spontaneous
  Country: GB (occurrence: GB)
  Receive Date: 20131115
  Receipt Date: 20131115
  Transmission Date: 20140711
  Serious: Yes (Death, Other)
  Sender: FDA-Public Use
  Company Number: GB-PFIZER INC-2013319984

PATIENT
  Age: 48 Year
  Sex: Male

DRUGS (2)
  1. CHAMPIX [Suspect]
     Indication: SMOKING CESSATION THERAPY
     Dosage: UNK
     Dates: start: 20120718, end: 2012
  2. CHAMPIX [Suspect]
     Dosage: 1 MG, UNK
     Dates: start: 2013

REACTIONS (4)
  - Cerebral haemorrhage [Fatal]
  - Plasma cell myeloma recurrent [Unknown]
  - Depressed mood [Unknown]
  - Overdose [Unknown]
